FAERS Safety Report 10265865 (Version 1)
Quarter: 2014Q2

REPORT INFORMATION
  Report Type: Spontaneous
  Country: US (occurrence: US)
  Receive Date: 20140627
  Receipt Date: 20140627
  Transmission Date: 20141212
  Serious: Yes (Hospitalization, Other)
  Sender: FDA-Public Use
  Company Number: US-ASTRAZENECA-2014SE45935

PATIENT
  Age: 40 Year
  Sex: Female
  Weight: 93.4 kg

DRUGS (9)
  1. TENORMIN [Suspect]
     Indication: PALPITATIONS
     Route: 048
     Dates: start: 1984
  2. PLENDIL [Suspect]
     Indication: HYPERTENSION
     Route: 048
     Dates: start: 1995, end: 2008
  3. PLENDIL [Suspect]
     Indication: HYPERTENSION
     Dosage: GENERIC
     Route: 065
     Dates: start: 2008
  4. PLENDIL [Suspect]
     Indication: HYPERTENSION
     Route: 048
     Dates: start: 2008
  5. LISINOPRIL [Suspect]
     Indication: HYPERTENSION
     Route: 048
  6. COZAAR [Suspect]
     Route: 065
  7. NORVASC [Suspect]
     Route: 065
  8. SYNTHROID [Concomitant]
     Indication: HORMONE REPLACEMENT THERAPY
     Dosage: .112 DAILY
     Route: 048
     Dates: start: 1980
  9. CLONIDINE [Concomitant]
     Indication: BLOOD PRESSURE ABNORMAL
     Route: 048
     Dates: start: 2011

REACTIONS (4)
  - Ventricular extrasystoles [Recovered/Resolved]
  - Meningioma [Unknown]
  - Anxiety [Unknown]
  - Off label use [Unknown]
